FAERS Safety Report 5625634-8 (Version None)
Quarter: 2008Q1

REPORT INFORMATION
  Report Type: 
  Country: None (occurrence: None)
  Receive Date: 20080208
  Receipt Date: 20080208
  Transmission Date: 20080703
  Serious: Yes (Hospitalization)
  Sender: FDA-Public Use
  Company Number: None

PATIENT
  Age: 66 Year
  Sex: Male
  Weight: 98.4 kg

DRUGS (1)
  1. WARFARIN SODIUM [Suspect]
     Indication: DRUG THERAPY
     Dosage: 5MG OTHER PO
     Route: 048
     Dates: start: 19980101

REACTIONS (2)
  - GINGIVAL BLEEDING [None]
  - POST PROCEDURAL HAEMORRHAGE [None]
